FAERS Safety Report 8350829-2 (Version None)
Quarter: 2012Q2

REPORT INFORMATION
  Report Type: 
  Country: None (occurrence: None)
  Receive Date: 20120510
  Receipt Date: 20120508
  Transmission Date: 20120825
  Serious: Yes (Other)
  Sender: FDA-Public Use
  Company Number: US-PFIZER INC-2012112678

PATIENT
  Sex: Female
  Weight: 77.098 kg

DRUGS (1)
  1. CELEBREX [Suspect]
     Indication: ROTATOR CUFF SYNDROME
     Dosage: 40 MG, 2X/DAY

REACTIONS (1)
  - ROTATOR CUFF SYNDROME [None]
